FAERS Safety Report 6724611-3 (Version None)
Quarter: 2010Q2

REPORT INFORMATION
  Report Type: 
  Country: None (occurrence: None)
  Receive Date: 20100513
  Receipt Date: 20100429
  Transmission Date: 20101027
  Serious: Yes (Hospitalization)
  Sender: FDA-Public Use
  Company Number: ES-ELI_LILLY_AND_COMPANY-ES201005000019

PATIENT
  Sex: Female
  Weight: 98 kg

DRUGS (5)
  1. FORTEO [Suspect]
     Indication: OSTEOPOROTIC FRACTURE
     Dosage: 20 UG, DAILY (1/D)
     Route: 058
     Dates: start: 20100421
  2. NORVASC [Concomitant]
     Indication: ANGIOPATHY
     Dosage: 5 MG, DAILY (1/D)
     Route: 048
  3. ALPRAZOLAM [Concomitant]
     Indication: ANGIOPATHY
     Dosage: 0.25 MG, DAILY (1/D)
     Route: 048
  4. OMEPRAZOLE [Concomitant]
     Indication: PROPHYLAXIS AGAINST GASTROINTESTINAL ULCER
     Dosage: 20 MG, DAILY (1/D)
     Route: 048
  5. CLOPIDOGREL [Concomitant]
     Indication: THROMBOSIS
     Dosage: 75 MG, DAILY (1/D)
     Route: 048

REACTIONS (1)
  - DEEP VEIN THROMBOSIS [None]
